FAERS Safety Report 17841629 (Version 1)
Quarter: 2020Q2

REPORT INFORMATION
  Report Type: Spontaneous
  Country: CA (occurrence: CA)
  Receive Date: 20200529
  Receipt Date: 20200529
  Transmission Date: 20200714
  Serious: Yes (Other)
  Sender: FDA-Public Use
  Company Number: CA-TEVA-2020-CA-1241495

PATIENT
  Age: 57 Year
  Sex: Female
  Weight: 66 kg

DRUGS (9)
  1. ACYCLOVIR. [Concomitant]
     Active Substance: ACYCLOVIR
  2. MAGNESIUM [Concomitant]
     Active Substance: MAGNESIUM
  3. CETIRIZINE [Concomitant]
     Active Substance: CETIRIZINE HYDROCHLORIDE
  4. ESOMEPRAZOLE. [Concomitant]
     Active Substance: ESOMEPRAZOLE MAGNESIUM
  5. SULFACETAMIDE SODIUM/SULFUR [Concomitant]
     Active Substance: SULFACETAMIDE SODIUM\SULFUR
  6. PACLITAXEL. [Suspect]
     Active Substance: PACLITAXEL
     Indication: ENDOMETRIAL CANCER
     Route: 042
  7. COLACE [Concomitant]
     Active Substance: DOCUSATE SODIUM
  8. PLANTAGO OVATA [Concomitant]
     Active Substance: HERBALS\PLANTAGO OVATA LEAF
  9. LORAZEPAM. [Concomitant]
     Active Substance: LORAZEPAM

REACTIONS (4)
  - Chest discomfort [Unknown]
  - Product use in unapproved indication [Unknown]
  - Off label use [Unknown]
  - Back pain [Unknown]
